FAERS Safety Report 5907031-0 (Version None)
Quarter: 2008Q4

REPORT INFORMATION
  Report Type: 
  Country: None (occurrence: None)
  Receive Date: 20081002
  Receipt Date: 20081002
  Transmission Date: 20090506
  Serious: Yes (Life-Threatening, Hospitalization)
  Sender: FDA-Public Use
  Company Number: None

PATIENT
  Sex: Male
  Weight: 62 kg

DRUGS (3)
  1. GABAPENTIN [Suspect]
     Indication: PAIN IN EXTREMITY
     Dosage: PO
     Route: 048
  2. ACETAMINOPHEN [Concomitant]
  3. MULTI-VITAMINS [Concomitant]

REACTIONS (9)
  - BRONCHITIS [None]
  - CONFUSIONAL STATE [None]
  - DRY MOUTH [None]
  - DYSTONIA [None]
  - HYPOPHAGIA [None]
  - LARYNGEAL OEDEMA [None]
  - LARYNGOSPASM [None]
  - MUSCLE TWITCHING [None]
  - RESPIRATORY ARREST [None]
